FAERS Safety Report 4740619-1 (Version None)
Quarter: 2005Q3

REPORT INFORMATION
  Report Type: 
  Country: None (occurrence: None)
  Receive Date: 20050801
  Receipt Date: 20050201
  Transmission Date: 20060218
  Serious: Yes (Other)
  Sender: FDA-Public Use
  Company Number: 800268

PATIENT
  Age: 56 Year
  Sex: Male
  Weight: 121 kg

DRUGS (13)
  1. EXTRANEAL [Suspect]
     Indication: PERITONEAL DIALYSIS
     Dosage: 2 L; EVERY DAY; IP
     Route: 033
     Dates: start: 20050113, end: 20050119
  2. DIANEAL [Concomitant]
  3. ALBUTEROL [Concomitant]
  4. CALCIUM CARBONATE [Concomitant]
  5. CARVEDILOL [Concomitant]
  6. GLUCOSE [Concomitant]
  7. INSULIN [Concomitant]
  8. MUPIROCIN [Concomitant]
  9. OMEPRAZOLE [Concomitant]
  10. DIATX [Concomitant]
  11. PIOGLITAZONE HCL [Concomitant]
  12. POLYETHYLENE GLYCOL [Concomitant]
  13. SIMVASTATIN [Concomitant]

REACTIONS (3)
  - GENITAL RASH [None]
  - RASH ERYTHEMATOUS [None]
  - RASH PRURITIC [None]
